FAERS Safety Report 16031946 (Version 1)
Quarter: 2019Q1

REPORT INFORMATION
  Report Type: Spontaneous
  Country: GB (occurrence: GB)
  Receive Date: 20190304
  Receipt Date: 20190304
  Transmission Date: 20190418
  Serious: Yes (Other)
  Sender: FDA-Public Use
  Company Number: GB-MYLANLABS-2019M1018686

PATIENT
  Age: 75 Year
  Sex: Female
  Weight: 53.97 kg

DRUGS (1)
  1. CLARITHROMYCIN. [Suspect]
     Active Substance: CLARITHROMYCIN
     Indication: LUNG INFECTION
     Dosage: 500 MILLIGRAM, QD
     Route: 048
     Dates: start: 20180530

REACTIONS (4)
  - Photosensitivity reaction [Unknown]
  - Rash [Recovered/Resolved with Sequelae]
  - Arthralgia [Recovered/Resolved with Sequelae]
  - Decreased appetite [Recovering/Resolving]

NARRATIVE: CASE EVENT DATE: 20180601
